FAERS Safety Report 15187388 (Version 1)
Quarter: 2018Q3

REPORT INFORMATION
  Report Type: Report from Study
  Country: US (occurrence: US)
  Receive Date: 20180723
  Receipt Date: 20180723
  Transmission Date: 20181010
  Serious: No
  Sender: FDA-Public Use
  Company Number: US-EXELIXIS-CABO-18012399

PATIENT
  Age: 70 Year
  Sex: Female

DRUGS (1)
  1. CABOMETYX [Suspect]
     Active Substance: CABOZANTINIB S-MALATE
     Indication: RENAL CANCER
     Dosage: 40 MG, QD
     Route: 048

REACTIONS (9)
  - Dysphonia [Unknown]
  - Diarrhoea [Unknown]
  - Dysgeusia [Unknown]
  - Pruritus [Unknown]
  - Stomatitis [Unknown]
  - Cold sweat [Unknown]
  - Hypoaesthesia [Unknown]
  - Dry mouth [Unknown]
  - Blood pressure increased [Unknown]

NARRATIVE: CASE EVENT DATE: 20180208
